FAERS Safety Report 8029629-9 (Version None)
Quarter: 2012Q1

REPORT INFORMATION
  Report Type: 
  Country: None (occurrence: None)
  Receive Date: 20120109
  Receipt Date: 20120105
  Transmission Date: 20120608
  Serious: No
  Sender: FDA-Public Use
  Company Number: US-PFIZER INC-2012004663

PATIENT
  Sex: Female
  Weight: 84.807 kg

DRUGS (10)
  1. CHANTIX [Suspect]
     Indication: SMOKING CESSATION THERAPY
     Dosage: 0.5 MG, DAILY
     Route: 048
     Dates: start: 20120102, end: 20120104
  2. CHANTIX [Suspect]
     Dosage: 0.5 MG, 2X/DAY
     Route: 048
     Dates: start: 20120105
  3. CYTOMEL [Concomitant]
     Indication: THYROID DISORDER
     Dosage: 25 MG, UNK
  4. SYNTHROID [Concomitant]
     Dosage: 75 UG, UNK
  5. PRAVACHOL [Concomitant]
     Indication: BLOOD CHOLESTEROL INCREASED
     Dosage: 10 MG, DAILY
  6. LYRICA [Concomitant]
     Indication: NEURALGIA
     Dosage: 25 MG, DAILY
  7. CYMBALTA [Concomitant]
     Dosage: 30 MG, DAILY
  8. MAXZIDE [Concomitant]
     Indication: THYROID DISORDER
     Dosage: 37.5/25 MG, UNK
  9. EXFORGE [Concomitant]
     Indication: HYPERTENSION
     Dosage: 5/160 MG, UNK
  10. SYNTHROID [Concomitant]
     Indication: THYROID DISORDER
     Dosage: 88 UG, UNK

REACTIONS (1)
  - MUSCLE SPASMS [None]
